FAERS Safety Report 21266177 (Version 2)
Quarter: 2022Q3

REPORT INFORMATION
  Report Type: Report from Study
  Country: US (occurrence: US)
  Receive Date: 20220829
  Receipt Date: 20220902
  Transmission Date: 20221027
  Serious: No
  Sender: FDA-Public Use
  Company Number: US-BRISTOL-MYERS SQUIBB COMPANY-2022-093195

PATIENT
  Age: 45 Year
  Sex: Female
  Weight: 88.904 kg

DRUGS (1)
  1. REVLIMID [Suspect]
     Active Substance: LENALIDOMIDE
     Indication: Plasma cell myeloma
     Dosage: 10 MG CAPSULE DAILY 21 DAYS
     Route: 048
     Dates: start: 20210104

REACTIONS (1)
  - No adverse event [Unknown]
